FAERS Safety Report 4625185-3 (Version None)
Quarter: 2005Q2

REPORT INFORMATION
  Report Type: 
  Country: None (occurrence: None)
  Receive Date: 20050325
  Receipt Date: 20050125
  Transmission Date: 20051028
  Serious: No
  Sender: FDA-Public Use
  Company Number: USA050189184

PATIENT
  Age: 54 Year
  Sex: Female

DRUGS (7)
  1. FORTEO [Suspect]
     Dates: start: 20050124
  2. DURAGESIC (FENTANYL) [Concomitant]
  3. FIORICET [Concomitant]
  4. ZOLOFT [Concomitant]
  5. REGLAN [Concomitant]
  6. ROBAXIN [Concomitant]
  7. MOBIC [Concomitant]

REACTIONS (4)
  - FEAR [None]
  - HEADACHE [None]
  - INJECTION SITE IRRITATION [None]
  - INJECTION SITE PAIN [None]
